FAERS Safety Report 18087788 (Version 1)
Quarter: 2020Q3

REPORT INFORMATION
  Report Type: Spontaneous
  Country: US (occurrence: US)
  Receive Date: 20200729
  Receipt Date: 20200729
  Transmission Date: 20201103
  Serious: Yes (Hospitalization, Other)
  Sender: FDA-Public Use
  Company Number: US-MYLANLABS-2020M1066836

PATIENT
  Age: 71 Year
  Sex: Female
  Weight: 92.52 kg

DRUGS (6)
  1. CARDURA [Suspect]
     Active Substance: DOXAZOSIN MESYLATE
     Indication: HYPERTENSION
     Dosage: UNK
     Dates: end: 202006
  2. VITAMIN C [Concomitant]
     Active Substance: ASCORBIC ACID
     Indication: SUPPLEMENTATION THERAPY
     Route: 048
  3. VITAMIN K [Concomitant]
     Active Substance: PHYTONADIONE
     Indication: SUPPLEMENTATION THERAPY
     Route: 048
  4. TYLENOL [Concomitant]
     Active Substance: ACETAMINOPHEN
     Dosage: UNK
     Route: 048
  5. HYDROCHLOROTHIAZIDE/TRIAMTERENE [Suspect]
     Active Substance: HYDROCHLOROTHIAZIDE\TRIAMTERENE
     Indication: HYPERTENSION
     Dosage: UNK
     Route: 048
     Dates: end: 202006
  6. THEOPHYLLINE [Concomitant]
     Active Substance: THEOPHYLLINE ANHYDROUS
     Indication: ASTHMA
     Dosage: UNK
     Route: 048

REACTIONS (3)
  - Hypotension [Recovering/Resolving]
  - Diarrhoea [Recovered/Resolved]
  - Abdominal pain [Recovered/Resolved]

NARRATIVE: CASE EVENT DATE: 202005
